FAERS Safety Report 9003297 (Version 4)
Quarter: 2013Q1

REPORT INFORMATION
  Report Type: Report from Study
  Country: US (occurrence: US)
  Receive Date: 20130108
  Receipt Date: 20130212
  Transmission Date: 20140127
  Serious: Yes (Hospitalization)
  Sender: FDA-Public Use
  Company Number: US-JNJFOC-20130102394

PATIENT
  Age: 16 Year
  Sex: Female
  Weight: 61.2 kg

DRUGS (8)
  1. REMICADE [Suspect]
     Indication: CROHN^S DISEASE
     Route: 042
     Dates: start: 20110413
  2. ORENCIA [Concomitant]
     Dates: start: 201205, end: 201212
  3. 5-ASA [Concomitant]
     Route: 048
  4. ONDANSETRON [Concomitant]
  5. TRAMADOL [Concomitant]
  6. CETIRIZINE HYDROCHLORIDE [Concomitant]
  7. METOPROLOL [Concomitant]
  8. MIDODRINE [Concomitant]

REACTIONS (1)
  - Crohn^s disease [Recovered/Resolved]
